FAERS Safety Report 7767028-5 (Version None)
Quarter: 2011Q3

REPORT INFORMATION
  Report Type: 
  Country: None (occurrence: None)
  Receive Date: 20110922
  Receipt Date: 20100915
  Transmission Date: 20111222
  Serious: No
  Sender: FDA-Public Use
  Company Number: US-ASTRAZENECA-2007UW12303

PATIENT
  Age: 53 Year
  Sex: Male
  Weight: 87.1 kg

DRUGS (17)
  1. SEROQUEL [Suspect]
     Indication: INSOMNIA
     Route: 048
     Dates: start: 19940101, end: 20050819
  2. LIPITOR [Concomitant]
     Indication: HYPERLIPIDAEMIA
     Dates: start: 20000222
  3. ZOCOR [Concomitant]
     Dates: start: 19971117
  4. FLOMAX [Concomitant]
     Indication: BENIGN PROSTATIC HYPERPLASIA
     Dates: start: 20040923
  5. EFFEXOR [Concomitant]
     Dates: start: 20030717, end: 20040112
  6. CARDURA [Concomitant]
     Indication: NOCTURIA
     Dosage: 4-8 MG
     Dates: start: 20000911
  7. PREVACID [Concomitant]
     Dates: start: 20000207
  8. LEXAPRO [Concomitant]
     Indication: INSOMNIA
     Dates: start: 20040627
  9. VIAGRA [Concomitant]
     Indication: ERECTILE DYSFUNCTION
     Dates: start: 20020709
  10. SEROQUEL [Suspect]
     Route: 048
     Dates: start: 20030413
  11. SEROQUEL [Suspect]
     Indication: DEPRESSION
     Route: 048
     Dates: start: 19940101, end: 20050819
  12. ZYRTEC [Concomitant]
     Dates: start: 20040406
  13. SEROQUEL [Suspect]
     Route: 048
     Dates: start: 20030413
  14. CLONAZEPAM [Concomitant]
     Dosage: HALF IN THE MORNING AND HALF IN THE EVENING
     Dates: start: 19970812
  15. TRAZODONE HYDROCHLORIDE [Concomitant]
     Dates: start: 19990804
  16. AMBIEN [Concomitant]
     Dates: start: 20020826
  17. RESTORIL [Concomitant]
     Dates: start: 20030101

REACTIONS (7)
  - OBESITY [None]
  - RECTAL FISSURE [None]
  - BLOOD CHOLESTEROL INCREASED [None]
  - DIABETES MELLITUS [None]
  - CATARACT [None]
  - TYPE 2 DIABETES MELLITUS [None]
  - HYPERLIPIDAEMIA [None]
